FAERS Safety Report 10358864 (Version 3)
Quarter: 2014Q3

REPORT INFORMATION
  Report Type: Spontaneous
  Country: US (occurrence: US)
  Receive Date: 20140804
  Receipt Date: 20140915
  Transmission Date: 20150326
  Serious: Yes (Other)
  Sender: FDA-Public Use
  Company Number: US-AMGEN-USASP2014041750

PATIENT
  Age: 55 Year
  Sex: Female
  Weight: 86.62 kg

DRUGS (2)
  1. PREDNISONE. [Concomitant]
     Active Substance: PREDNISONE
     Dosage: 10 MG, QD
  2. ENBREL [Suspect]
     Active Substance: ETANERCEPT
     Indication: RHEUMATOID ARTHRITIS
     Dosage: 50 MG, QWK
     Route: 058
     Dates: start: 20140304

REACTIONS (6)
  - Joint swelling [Not Recovered/Not Resolved]
  - Impaired healing [Recovering/Resolving]
  - Tendon injury [Recovering/Resolving]
  - Incision site complication [Not Recovered/Not Resolved]
  - Local swelling [Not Recovered/Not Resolved]
  - Weight bearing difficulty [Not Recovered/Not Resolved]

NARRATIVE: CASE EVENT DATE: 20140402
